FAERS Safety Report 7075547-2 (Version None)
Quarter: 2010Q4

REPORT INFORMATION
  Report Type: 
  Country: None (occurrence: None)
  Receive Date: 20101030
  Receipt Date: 20100930
  Transmission Date: 20110411
  Serious: No
  Sender: FDA-Public Use
  Company Number: US-WYE-H17934210

PATIENT
  Age: 82 Year
  Sex: Male
  Weight: 90.8 kg

DRUGS (2)
  1. TORISEL [Suspect]
     Indication: NEOPLASM MALIGNANT
     Route: 040
     Dates: start: 20100709
  2. LASIX [Concomitant]

REACTIONS (1)
  - FLUID RETENTION [None]
